FAERS Safety Report 14507409 (Version 1)
Quarter: 2018Q1

REPORT INFORMATION
  Report Type: Spontaneous
  Country: US (occurrence: US)
  Receive Date: 20180208
  Receipt Date: 20180208
  Transmission Date: 20180509
  Serious: No
  Sender: FDA-Public Use
  Company Number: US-PURDUE-USA-2017-0141244

PATIENT
  Age: 47 Year
  Sex: Male

DRUGS (6)
  1. OXYCODONE [Concomitant]
     Active Substance: OXYCODONE
     Indication: NEURALGIA
  2. TYLENOL [Concomitant]
     Active Substance: ACETAMINOPHEN
     Indication: NEURALGIA
  3. BUTRANS [Suspect]
     Active Substance: BUPRENORPHINE
     Indication: NEURALGIA
     Dosage: 10 UNK, UNK
     Route: 062
     Dates: start: 201708, end: 201709
  4. TYLENOL [Concomitant]
     Active Substance: ACETAMINOPHEN
     Indication: RENAL PAIN
     Dosage: 1-2 TABLET, Q6H PRN
     Route: 048
  5. OXYCODONE [Concomitant]
     Active Substance: OXYCODONE
     Indication: RENAL PAIN
     Dosage: 10 MG, 1-2 TABLETS, Q6H PRN
     Route: 048
  6. BUTRANS [Suspect]
     Active Substance: BUPRENORPHINE
     Indication: RENAL PAIN
     Dosage: 20 MCG/HR, WEEKLY
     Route: 062
     Dates: start: 201709

REACTIONS (1)
  - Drug ineffective [Unknown]
